FAERS Safety Report 10770115 (Version 4)
Quarter: 2016Q2

REPORT INFORMATION
  Report Type: Report from Study
  Country: US (occurrence: US)
  Receive Date: 20150206
  Receipt Date: 20160426
  Transmission Date: 20160815
  Serious: Yes (Death, Hospitalization)
  Sender: FDA-Public Use
  Company Number: US-ACTELION-A-NJ2015-112161

PATIENT
  Age: 57 Year
  Sex: Female

DRUGS (2)
  1. TRACLEER [Suspect]
     Active Substance: BOSENTAN
     Indication: PULMONARY ARTERIAL HYPERTENSION
     Dosage: UNK
     Route: 048
  2. NIFEDIPINE. [Concomitant]
     Active Substance: NIFEDIPINE

REACTIONS (6)
  - Dyspnoea [Unknown]
  - Death [Fatal]
  - Dialysis related complication [Unknown]
  - Oedema [Unknown]
  - Fluid retention [Unknown]
  - Malaise [Unknown]

NARRATIVE: CASE EVENT DATE: 20150112
